FAERS Safety Report 5397590-1 (Version None)
Quarter: 2007Q3

REPORT INFORMATION
  Report Type: 
  Country: None (occurrence: None)
  Receive Date: 20070723
  Receipt Date: 20070723
  Transmission Date: 20080115
  Serious: Yes (Other)
  Sender: FDA-Public Use
  Company Number: None

PATIENT
  Age: 28 Year
  Sex: Female
  Weight: 90.7194 kg

DRUGS (1)
  1. PROACTIVE  2.5% BENZOYL PEROXIDE  GUTHY-RENKER [Suspect]
     Indication: ACNE
     Dosage: SMALL APPLICATION OF   2 TIMES DAILY  TOP
     Route: 061
     Dates: start: 20070720, end: 20070721

REACTIONS (3)
  - APPLICATION SITE HYPERSENSITIVITY [None]
  - ERYTHEMA [None]
  - PRURITUS [None]
